FAERS Safety Report 20469603 (Version 2)
Quarter: 2022Q1

REPORT INFORMATION
  Report Type: Spontaneous
  Country: CH (occurrence: None)
  Receive Date: 20220214
  Receipt Date: 20220218
  Transmission Date: 20220423
  Serious: Yes (Life-Threatening, Hospitalization, Other)
  Sender: FDA-Public Use
  Company Number: 2022A066669

PATIENT
  Age: 81 Year
  Sex: Female

DRUGS (11)
  1. QUETIAPINE FUMARATE [Suspect]
     Active Substance: QUETIAPINE FUMARATE
     Indication: Depression
     Route: 048
     Dates: start: 20210608, end: 20210629
  2. PANTOPRAZOLE SODIUM [Suspect]
     Active Substance: PANTOPRAZOLE SODIUM
     Route: 048
     Dates: start: 20210317, end: 20210629
  3. IBUPROFEN [Suspect]
     Active Substance: IBUPROFEN
     Route: 048
     Dates: start: 20210628, end: 20210629
  4. PIPERACILLIN AND TAZOBACTAM [Suspect]
     Active Substance: PIPERACILLIN SODIUM\TAZOBACTAM SODIUM
     Dosage: 8 HOURS
     Route: 042
     Dates: start: 20210629, end: 20210704
  5. LITHIUM [Suspect]
     Active Substance: LITHIUM
     Indication: Depression
     Route: 048
     Dates: start: 20210623, end: 20210705
  6. LITHIUM [Suspect]
     Active Substance: LITHIUM
     Indication: Depression
     Route: 048
     Dates: start: 20210712
  7. VENLAFAXINE HYDROCHLORIDE [Concomitant]
     Active Substance: VENLAFAXINE HYDROCHLORIDE
     Route: 048
     Dates: start: 20210423, end: 20210629
  8. VENLAFAXINE HYDROCHLORIDE [Concomitant]
     Active Substance: VENLAFAXINE HYDROCHLORIDE
     Route: 048
     Dates: start: 20210707
  9. TEMESTA [Concomitant]
     Route: 048
     Dates: start: 20210518, end: 20210629
  10. TEMESTA [Concomitant]
     Dosage: AS NECESSARY
     Route: 048
     Dates: start: 20210630
  11. NEBIVOLOL [Concomitant]
     Active Substance: NEBIVOLOL
     Route: 048
     Dates: start: 20210401

REACTIONS (10)
  - Agranulocytosis [Recovered/Resolved]
  - Febrile neutropenia [Recovered/Resolved]
  - Sepsis [Recovered/Resolved]
  - Drug-induced liver injury [Recovering/Resolving]
  - Poisoning [Recovered/Resolved]
  - Apathy [Recovered/Resolved]
  - Muscle rigidity [Recovered/Resolved]
  - Muscle contractions involuntary [Recovered/Resolved]
  - Tremor [Recovered/Resolved]
  - Hyperreflexia [Recovered/Resolved]

NARRATIVE: CASE EVENT DATE: 20210629
